FAERS Safety Report 22196580 (Version 1)
Quarter: 2023Q2

REPORT INFORMATION
  Report Type: Report from Study
  Country: FR (occurrence: None)
  Receive Date: 20230411
  Receipt Date: 20230411
  Transmission Date: 20230722
  Serious: Yes (Hospitalization)
  Sender: FDA-Public Use
  Company Number: FR-ROCHE-3095628

PATIENT
  Age: 70 Year
  Sex: Female
  Weight: 40 kg

DRUGS (12)
  1. ATEZOLIZUMAB [Suspect]
     Active Substance: ATEZOLIZUMAB
     Indication: Neoplasm
     Dosage: CUMULATIVE DOSE SINCE THE 1ST ADMINISTRATION: 1200 MG?LAST ADMINISTERED DATE PRIOR TO AE ONSET: 09/M
     Route: 041
     Dates: start: 20220509
  2. INVESTIGATIONAL PRODUCT [Suspect]
     Active Substance: INVESTIGATIONAL PRODUCT
     Indication: Neoplasm
     Dosage: LAST ADMINISTERED DATE PRIOR TO AE ONSET: 23/MAY/2022, 12/JUL/2022, 03/OCT/2022 AND 31/OCT/2022, LAS
     Route: 042
     Dates: start: 20220509
  3. MAGNESIUM [Concomitant]
     Active Substance: MAGNESIUM
     Route: 048
  4. PHOSPHORUS [Concomitant]
     Active Substance: PHOSPHORUS
     Route: 048
  5. TAHOR [Concomitant]
     Active Substance: ATORVASTATIN CALCIUM
     Route: 048
  6. PLAVIX [Concomitant]
     Active Substance: CLOPIDOGREL BISULFATE
     Route: 048
  7. CANDESARTAN [Concomitant]
     Active Substance: CANDESARTAN
     Route: 048
  8. POLARAMINE [Concomitant]
     Active Substance: DEXCHLORPHENIRAMINE MALEATE
     Indication: Premedication
  9. VITAMIN D3 [Concomitant]
     Active Substance: CHOLECALCIFEROL
     Route: 048
  10. ZOPICLONE [Concomitant]
     Active Substance: ZOPICLONE
     Route: 048
  11. CHOLECALCIFEROL [Concomitant]
     Active Substance: CHOLECALCIFEROL
     Route: 048
  12. MORPHINE SULFATE [Concomitant]
     Active Substance: MORPHINE SULFATE
     Route: 048

REACTIONS (6)
  - Pyrexia [Recovered/Resolved]
  - Pneumothorax [Recovered/Resolved]
  - Ureteral stent insertion [Recovered/Resolved]
  - Pyelonephritis acute [Recovered/Resolved with Sequelae]
  - Infusion related reaction [Recovered/Resolved]
  - Nephrostomy [Unknown]

NARRATIVE: CASE EVENT DATE: 20220509
